FAERS Safety Report 8983964 (Version 1)
Quarter: 2012Q4

REPORT INFORMATION
  Report Type: Spontaneous
  Country: US (occurrence: None)
  Receive Date: 20121212
  Receipt Date: 20121212
  Transmission Date: 20130627
  Serious: Yes (Other)
  Sender: FDA-Public Use
  Company Number: DKLU1086804

PATIENT
  Age: 36 Year
  Sex: Female

DRUGS (2)
  1. ONFI (CLOBAZAM) (CLOBAZAM) (10 MG, TABLET) [Suspect]
     Route: 048
     Dates: start: 20121014
  2. LAMICTAL [Concomitant]

REACTIONS (4)
  - Tongue discolouration [None]
  - Tongue discolouration [None]
  - Throat irritation [None]
  - Oesophageal ulcer [None]
